FAERS Safety Report 5478999-4 (Version None)
Quarter: 2007Q4

REPORT INFORMATION
  Report Type: 
  Country: None (occurrence: None)
  Receive Date: 20071006
  Receipt Date: 20070925
  Transmission Date: 20080405
  Serious: Yes (Other)
  Sender: FDA-Public Use
  Company Number: GB-PFIZER INC-2007080381

PATIENT
  Age: 18 Year
  Sex: Male

DRUGS (1)
  1. VIBRAMYCIN [Suspect]
     Indication: MALARIA PROPHYLAXIS

REACTIONS (3)
  - ABDOMINAL PAIN UPPER [None]
  - OESOPHAGEAL ULCER [None]
  - PHARYNGOLARYNGEAL PAIN [None]
